FAERS Safety Report 8189131-0 (Version None)
Quarter: 2012Q1

REPORT INFORMATION
  Report Type: 
  Country: None (occurrence: None)
  Receive Date: 20120307
  Receipt Date: 20120223
  Transmission Date: 20120608
  Serious: Yes (Life-Threatening, Hospitalization)
  Sender: FDA-Public Use
  Company Number: BE-AMGEN-BELSP2012005118

PATIENT
  Age: 41 Year
  Sex: Male
  Weight: 81 kg

DRUGS (5)
  1. CIPROXINE                          /00697201/ [Concomitant]
     Dosage: 500 MG, 1X/DAY
     Route: 048
  2. MOTILIUM                           /00498201/ [Concomitant]
     Dosage: UNK
  3. SACCHAROMYCES BOULARDII [Concomitant]
     Dosage: UNK
  4. ACETAMINOPHEN [Concomitant]
     Dosage: 2 G, 1X/DAY
     Route: 048
  5. ENBREL [Suspect]
     Indication: PSORIASIS
     Dosage: 50 MG, WEEKLY
     Route: 058
     Dates: start: 20080425

REACTIONS (2)
  - GUILLAIN-BARRE SYNDROME [None]
  - PHARYNGITIS [None]
